FAERS Safety Report 5122142-8 (Version None)
Quarter: 2006Q4

REPORT INFORMATION
  Report Type: 
  Country: None (occurrence: None)
  Receive Date: 20061004
  Receipt Date: 20061004
  Transmission Date: 20070319
  Serious: Yes (Other)
  Sender: FDA-Public Use
  Company Number: None

PATIENT
  Age: 45 Year
  Sex: Male
  Weight: 113.3993 kg

DRUGS (1)
  1. LEVAQUIN [Suspect]
     Indication: PROSTATE INFECTION
     Dosage: 500 MG FOR 6 WEEKS 1 PER DAY PO
     Route: 048
     Dates: start: 20060815, end: 20061001

REACTIONS (6)
  - ARTHRALGIA [None]
  - FEELING ABNORMAL [None]
  - HEART RATE INCREASED [None]
  - HYPOAESTHESIA [None]
  - MYALGIA [None]
  - PAIN IN EXTREMITY [None]
